FAERS Safety Report 7897567-8 (Version None)
Quarter: 2011Q4

REPORT INFORMATION
  Report Type: 
  Country: None (occurrence: None)
  Receive Date: 20111107
  Receipt Date: 20111025
  Transmission Date: 20120403
  Serious: Yes (Hospitalization)
  Sender: FDA-Public Use
  Company Number: IT-ELI_LILLY_AND_COMPANY-IT201110006811

PATIENT
  Sex: Male

DRUGS (2)
  1. EFFIENT [Suspect]
     Indication: ACUTE CORONARY SYNDROME
     Dosage: 10 MG, QD
     Route: 048
     Dates: start: 20111004, end: 20111010
  2. ASPIRIN [Concomitant]
     Dosage: 100 MG, UNKNOWN
     Route: 048

REACTIONS (2)
  - THROMBOCYTOPENIA [None]
  - PETECHIAE [None]
